FAERS Safety Report 21188395 (Version 4)
Quarter: 2022Q4

REPORT INFORMATION
  Report Type: Report from Study
  Country: US (occurrence: US)
  Receive Date: 20220809
  Receipt Date: 20221124
  Transmission Date: 20230112
  Serious: No
  Sender: FDA-Public Use
  Company Number: US-BIOVITRUM-2022US09422

PATIENT
  Age: 29 Year
  Sex: Female

DRUGS (2)
  1. KINERET [Suspect]
     Active Substance: ANAKINRA
     Indication: Juvenile idiopathic arthritis
     Dates: start: 20191205
  2. KINERET [Suspect]
     Active Substance: ANAKINRA
     Indication: Still^s disease
     Dates: start: 20191205

REACTIONS (10)
  - Foot fracture [Unknown]
  - Joint swelling [Unknown]
  - Ligament sprain [Unknown]
  - Pain in extremity [Unknown]
  - Hypokinesia [Unknown]
  - Illness [Unknown]
  - Nasopharyngitis [Unknown]
  - Anxiety [Unknown]
  - Depression [Unknown]
  - Off label use [Not Recovered/Not Resolved]

NARRATIVE: CASE EVENT DATE: 20191205
